FAERS Safety Report 6407934-7 (Version None)
Quarter: 2009Q4

REPORT INFORMATION
  Report Type: 
  Country: None (occurrence: None)
  Receive Date: 20091015
  Receipt Date: 20091001
  Transmission Date: 20100525
  Serious: Yes (Death, Hospitalization)
  Sender: FDA-Public Use
  Company Number: WAES 0909USA01070

PATIENT
  Age: 59 Year
  Sex: Female

DRUGS (22)
  1. CAP VORINOSTAT [Suspect]
     Indication: MULTIPLE MYELOMA
     Dosage: 400 MG/DAILY; PO
     Route: 048
     Dates: start: 20090901, end: 20090906
  2. BORTEZOMIB [Suspect]
     Indication: MULTIPLE MYELOMA
     Dosage: 1.75 MG/1X; IV, 1.75 MG/1X; IV
     Route: 042
     Dates: start: 20090901, end: 20090901
  3. BORTEZOMIB [Suspect]
     Indication: MULTIPLE MYELOMA
     Dosage: 1.75 MG/1X; IV, 1.75 MG/1X; IV
     Route: 042
     Dates: start: 20090904, end: 20090904
  4. DEFERASIROX [Concomitant]
  5. GABAPENTIN [Concomitant]
  6. LOPERAMIDE HCL [Concomitant]
  7. ATIVAN [Concomitant]
  8. ATROVENT [Concomitant]
  9. COMPAZINE [Concomitant]
  10. FLOMAX (MORNIFLUMATE) [Concomitant]
  11. OXYCONTIN [Concomitant]
  12. PERIDEX (CHLORHEXIDINE GLUCONATE) [Concomitant]
  13. ACETAMINOPHEN [Concomitant]
  14. XOPENEX [Concomitant]
  15. ZOFRAN [Concomitant]
  16. ACYCLOVIR [Concomitant]
  17. ALLOPURINOL [Concomitant]
  18. HYDROCORTISONE [Concomitant]
  19. HYDROXYUREA [Concomitant]
  20. OXYCODONE [Concomitant]
  21. PAROXETINE HCL [Concomitant]
  22. POTASSIUM CHLORIDE [Concomitant]

REACTIONS (14)
  - ACUTE RESPIRATORY DISTRESS SYNDROME [None]
  - ASPARTATE AMINOTRANSFERASE INCREASED [None]
  - ASTHENIA [None]
  - BLOOD LACTATE DEHYDROGENASE INCREASED [None]
  - CONTINUOUS HAEMODIAFILTRATION [None]
  - FEBRILE NEUTROPENIA [None]
  - HAEMOGLOBIN DECREASED [None]
  - PLATELET COUNT DECREASED [None]
  - PNEUMONIA [None]
  - PULMONARY OEDEMA [None]
  - RED BLOOD CELL COUNT DECREASED [None]
  - RENAL FAILURE ACUTE [None]
  - TUMOUR LYSIS SYNDROME [None]
  - WHITE BLOOD CELL COUNT DECREASED [None]
